FAERS Safety Report 17418071 (Version 1)
Quarter: 2020Q1

REPORT INFORMATION
  Report Type: Spontaneous
  Country: US (occurrence: US)
  Receive Date: 20200214
  Receipt Date: 20200214
  Transmission Date: 20200409
  Serious: Yes (Other)
  Sender: FDA-Public Use
  Company Number: None

PATIENT
  Age: 14 Year
  Sex: Male
  Weight: 30 kg

DRUGS (2)
  1. RITUXIMAB. [Suspect]
     Active Substance: RITUXIMAB
  2. EPINEPHRINE AUTOINJECTOR [Suspect]
     Active Substance: EPINEPHRINE
     Indication: ANAPHYLACTIC REACTION
     Dosage: ?          OTHER FREQUENCY:1TIME;?
     Route: 030
     Dates: start: 20200212, end: 20200212

REACTIONS (2)
  - Complication associated with device [None]
  - Needle issue [None]

NARRATIVE: CASE EVENT DATE: 20200212
